FAERS Safety Report 4514759-6 (Version None)
Quarter: 2004Q4

REPORT INFORMATION
  Report Type: 
  Country: None (occurrence: None)
  Receive Date: 20041201
  Receipt Date: 20041118
  Transmission Date: 20050328
  Serious: Yes (Hospitalization)
  Sender: FDA-Public Use
  Company Number: ES-JNJFOC-20041106105

PATIENT
  Age: 66 Year
  Sex: Female

DRUGS (7)
  1. INFLIXIMAB [Suspect]
     Indication: RHEUMATOID ARTHRITIS
     Route: 042
  2. METHOTREXATE [Concomitant]
  3. CORTICOIDS [Concomitant]
  4. ACFOL [Concomitant]
  5. DIURETICS [Concomitant]
  6. STATINS [Concomitant]
  7. VENOTONIC [Concomitant]

REACTIONS (1)
  - OBLITERATIVE BRONCHIOLITIS [None]
